FAERS Safety Report 8972086 (Version 1)
Quarter: 2012Q4

REPORT INFORMATION
  Report Type: 
  Country: US (occurrence: US)
  Receive Date: 20121219
  Receipt Date: 20121219
  Transmission Date: 20130627
  Serious: Yes (Other)
  Sender: FDA-Public Use
  Company Number: US-ELI_LILLY_AND_COMPANY-US201212003956

PATIENT
  Sex: Male

DRUGS (1)
  1. HUMALOG 25% LISPRO, 75% NPL [Suspect]
     Dosage: 12 u, bid
     Dates: start: 20121208

REACTIONS (4)
  - Shock hypoglycaemic [Unknown]
  - Hyperhidrosis [Unknown]
  - Heart rate increased [Unknown]
  - Hunger [Unknown]
